FAERS Safety Report 8161324-8 (Version None)
Quarter: 2012Q1

REPORT INFORMATION
  Report Type: 
  Country: None (occurrence: None)
  Receive Date: 20120224
  Receipt Date: 20120215
  Transmission Date: 20120608
  Serious: Yes (Hospitalization)
  Sender: FDA-Public Use
  Company Number: US-CELGENEUS-163-21880-12021716

PATIENT
  Sex: Female

DRUGS (2)
  1. REVLIMID [Suspect]
     Indication: MULTIPLE MYELOMA
     Dosage: 10 MILLIGRAM
     Route: 048
     Dates: start: 20110224, end: 20110415
  2. REVLIMID [Suspect]
     Dosage: 10 MILLIGRAM
     Route: 048
     Dates: start: 20110101, end: 20110506

REACTIONS (7)
  - HYPERCALCAEMIA [None]
  - VOMITING [None]
  - ASTHENIA [None]
  - HYPOKALAEMIA [None]
  - DEHYDRATION [None]
  - NAUSEA [None]
  - DIARRHOEA [None]
